FAERS Safety Report 5419866-1 (Version None)
Quarter: 2007Q3

REPORT INFORMATION
  Report Type: 
  Country: None (occurrence: None)
  Receive Date: 20070820
  Receipt Date: 20070809
  Transmission Date: 20080115
  Serious: Yes (Other)
  Sender: FDA-Public Use
  Company Number: NL-JNJFOC-20070802266

PATIENT
  Sex: Female

DRUGS (5)
  1. INFLIXIMAB [Suspect]
     Indication: RHEUMATOID ARTHRITIS
     Route: 042
  2. LIPITOR [Concomitant]
  3. METHOTREXATE [Concomitant]
  4. CENTYL [Concomitant]
  5. ASPIRIN [Concomitant]

REACTIONS (1)
  - SKIN HYPERTROPHY [None]
